FAERS Safety Report 9055538 (Version 2)
Quarter: 2013Q3

REPORT INFORMATION
  Report Type: Spontaneous
  Country: JP (occurrence: JP)
  Receive Date: 20130206
  Receipt Date: 20130715
  Transmission Date: 20140515
  Serious: Yes (Other)
  Sender: FDA-Public Use
  Company Number: JP-GLAXOSMITHKLINE-B0864712A

PATIENT
  Sex: Female

DRUGS (3)
  1. PAXIL [Suspect]
     Indication: DEPRESSION
     Route: 048
     Dates: start: 20121003
  2. PAXIL [Suspect]
     Indication: DEPRESSION
     Route: 048
  3. LENDORMIN [Concomitant]
     Route: 048

REACTIONS (7)
  - Urinary retention [Unknown]
  - Abdominal discomfort [Unknown]
  - Dizziness [Unknown]
  - Constipation [Unknown]
  - Ear pain [Unknown]
  - Abdominal pain [Unknown]
  - Constipation [Unknown]
